FAERS Safety Report 5476542-7 (Version None)
Quarter: 2007Q3

REPORT INFORMATION
  Report Type: 
  Country: None (occurrence: None)
  Receive Date: 20070926
  Receipt Date: 20070125
  Transmission Date: 20080115
  Serious: Yes (Disabling, Other)
  Sender: FDA-Public Use
  Company Number: 2006152058

PATIENT
  Age: 75 Year
  Sex: Female
  Weight: 63.1 kg

DRUGS (6)
  1. ZYRTEC [Suspect]
     Indication: HYPERSENSITIVITY
     Dosage: (10 MG)
     Dates: start: 20061204
  2. ZYRTEC [Suspect]
     Indication: VERTIGO
     Dosage: (10 MG)
     Dates: start: 20061204
  3. ANTIVERT [Suspect]
     Indication: VERTIGO
  4. LIPITOR [Concomitant]
  5. ACETYLSALICYLIC ACID SRT [Concomitant]
  6. ALL OTHER THERAPEUTIC PRODUCTS (ALL OTHER THERAPEUTIC PRODUCTS) [Concomitant]

REACTIONS (3)
  - DRUG INEFFECTIVE [None]
  - IMPAIRED DRIVING ABILITY [None]
  - SOMNOLENCE [None]
